FAERS Safety Report 19778424 (Version 1)
Quarter: 2021Q3

REPORT INFORMATION
  Report Type: Spontaneous
  Country: NL (occurrence: NL)
  Receive Date: 20210902
  Receipt Date: 20210902
  Transmission Date: 20211014
  Serious: Yes (Hospitalization)
  Sender: FDA-Public Use
  Company Number: NL-MICRO LABS LIMITED-ML2021-02206

PATIENT
  Age: 18 Year
  Sex: Female
  Weight: 50 kg

DRUGS (2)
  1. QUETIAPINE. [Suspect]
     Active Substance: QUETIAPINE
  2. CLOMIPRAMINE HYDROCHLORIDE CAPSULES USP, 25 MG [Suspect]
     Active Substance: CLOMIPRAMINE HYDROCHLORIDE

REACTIONS (8)
  - Agitation [Recovering/Resolving]
  - Bezoar [Recovering/Resolving]
  - Depressed level of consciousness [Recovering/Resolving]
  - Anxiety [Recovering/Resolving]
  - Overdose [Recovering/Resolving]
  - Slow response to stimuli [Recovering/Resolving]
  - Supraventricular tachycardia [Recovering/Resolving]
  - Poisoning [Recovering/Resolving]
